FAERS Safety Report 15694496 (Version 1)
Quarter: 2018Q4

REPORT INFORMATION
  Report Type: Spontaneous
  Country: DE (occurrence: DE)
  Receive Date: 20181206
  Receipt Date: 20181206
  Transmission Date: 20190205
  Serious: Yes (Death, Life-Threatening, Hospitalization, Other)
  Sender: FDA-Public Use
  Company Number: DE-MYLANLABS-2018M1088518

PATIENT
  Age: 58 Year
  Sex: Male

DRUGS (2)
  1. HEPARIN [Suspect]
     Active Substance: HEPARIN SODIUM
     Indication: ANTICOAGULANT THERAPY
     Dosage: INITIAL DOSE OF 30 IU/KG WITH A TARGET ACTIVATED CLOTTING TIME (ACT) OF OVER 400 SECONDS.
     Route: 042
  2. HEPARIN [Suspect]
     Active Substance: HEPARIN SODIUM
     Indication: THROMBOSIS PROPHYLAXIS
     Dosage: WITH A TARGET ACTIVATED PARTIAL THROMBOPLASTIN TIME OF 60 TO 80 SECONDS; STARTED ON THE DAY OF HO...
     Route: 042

REACTIONS (6)
  - Heparin-induced thrombocytopenia [Fatal]
  - Thrombosis [Unknown]
  - Haemodynamic instability [Unknown]
  - Haemorrhage [Fatal]
  - Respiratory disorder [Unknown]
  - Acute hepatic failure [Unknown]
